FAERS Safety Report 4840426-5 (Version None)
Quarter: 2005Q4

REPORT INFORMATION
  Report Type: 
  Country: None (occurrence: None)
  Receive Date: 20051101
  Receipt Date: 20050815
  Transmission Date: 20060501
  Serious: No
  Sender: FDA-Public Use
  Company Number: MK200508-0197-1

PATIENT
  Age: 63 Year
  Sex: Male

DRUGS (1)
  1. NEUTROSPEC [Suspect]
     Indication: OSTEOMYELITIS
     Dosage: 20 MCI, ONE TIME, IV
     Route: 042
     Dates: start: 20050815, end: 20050815

REACTIONS (2)
  - HYPOKINESIA [None]
  - VOMITING [None]
